FAERS Safety Report 20239243 (Version 1)
Quarter: 2021Q4

REPORT INFORMATION
  Report Type: Spontaneous
  Country: US (occurrence: US)
  Receive Date: 20211228
  Receipt Date: 20211228
  Transmission Date: 20220303
  Serious: No
  Sender: FDA-Public Use
  Company Number: US-PFIZER INC-202101690129

PATIENT
  Age: 47 Year
  Sex: Female
  Weight: 60.78 kg

DRUGS (2)
  1. TOLTERODINE TARTRATE [Suspect]
     Active Substance: TOLTERODINE TARTRATE
     Dosage: 4 MG, 1X/DAY (4MG ONCE A DAY, BUT HER DOCTOR TOLD HER TO TAKE IT TWICE A DAY)
  2. TOLTERODINE TARTRATE [Suspect]
     Active Substance: TOLTERODINE TARTRATE
     Dosage: 4 MG, 2X/DAY (4MG ONCE A DAY, BUT HER DOCTOR TOLD HER TO TAKE IT TWICE A DAY)

REACTIONS (2)
  - Bladder disorder [Not Recovered/Not Resolved]
  - Drug ineffective [Not Recovered/Not Resolved]
